FAERS Safety Report 5389561-6 (Version None)
Quarter: 2007Q3

REPORT INFORMATION
  Report Type: 
  Country: None (occurrence: None)
  Receive Date: 20070717
  Receipt Date: 20070709
  Transmission Date: 20080115
  Serious: Yes (Death, Hospitalization)
  Sender: FDA-Public Use
  Company Number: HQWYE976810JUL07

PATIENT
  Age: 81 Year
  Sex: Male
  Weight: 78.09 kg

DRUGS (5)
  1. CORDARONE [Suspect]
     Indication: ATRIAL FIBRILLATION
     Dosage: 200 MG OR LESS DAILY
     Route: 048
  2. LIPITOR [Concomitant]
     Indication: HYPERCHOLESTEROLAEMIA
  3. SEREVENT [Concomitant]
     Indication: ASTHMA
     Dosage: UNSPECIFIED
     Route: 055
  4. COUMADIN [Concomitant]
     Indication: ATRIAL FIBRILLATION
  5. BIAXIN [Concomitant]
     Indication: PNEUMONIA

REACTIONS (4)
  - HAEMORRHAGE [None]
  - INTERNATIONAL NORMALISED RATIO INCREASED [None]
  - PLEURISY VIRAL [None]
  - PNEUMONIA PRIMARY ATYPICAL [None]
